FAERS Safety Report 5788860-3 (Version None)
Quarter: 2008Q2

REPORT INFORMATION
  Report Type: 
  Country: None (occurrence: None)
  Receive Date: 20080623
  Receipt Date: 20080610
  Transmission Date: 20081010
  Serious: Yes (Other)
  Sender: FDA-Public Use
  Company Number: 100#08#2008-03188

PATIENT
  Age: 43 Year
  Sex: Female

DRUGS (6)
  1. CARBAMAZEPINE [Suspect]
     Indication: HISTRIONIC PERSONALITY DISORDER
     Dosage: 20 MG, THE DOSAGE SLOWLY TITRATED TO 400 MG/DAY OVER A 2-MONTH PERIOD
  2. CHLORAL HYDRATE (CHLORAL HYDRATE) [Suspect]
     Indication: ANXIETY
     Dosage: 500 MG
  3. CHLORAL HYDRATE (CHLORAL HYDRATE) [Suspect]
     Indication: INSOMNIA
     Dosage: 500 MG
  4. MELITRACEN/FLUPENTIXOL (MELITRACEN, FLUPENTIXOL) [Suspect]
     Indication: ANXIETY
     Dosage: 10 MG/0.5 MG
  5. MELITRACEN/FLUPENTIXOL (MELITRACEN, FLUPENTIXOL) [Suspect]
     Indication: INSOMNIA
     Dosage: 10 MG/0.5 MG
  6. LORAZEPAM [Concomitant]
     Indication: BIPOLAR DISORDER

REACTIONS (5)
  - AGITATION [None]
  - ANXIETY [None]
  - ECCHYMOSIS [None]
  - INSOMNIA [None]
  - PURPURA [None]
